FAERS Safety Report 24289915 (Version 1)
Quarter: 2024Q3

REPORT INFORMATION
  Report Type: Spontaneous
  Country: FR (occurrence: FR)
  Receive Date: 20240906
  Receipt Date: 20240906
  Transmission Date: 20241016
  Serious: Yes (Hospitalization, Other)
  Sender: AUROBINDO
  Company Number: FR-AFSSAPS-AVTO2024000124

PATIENT
  Age: 30 Year
  Sex: Female

DRUGS (1)
  1. TRAMADOL [Suspect]
     Active Substance: TRAMADOL\TRAMADOL HYDROCHLORIDE
     Indication: Sciatica
     Dosage: 2 GRAM, DAILY (2 G/JOUR; (10 CP X 200 MG)  )
     Route: 048
     Dates: start: 202407, end: 202407

REACTIONS (3)
  - Suicide attempt [Recovered/Resolved]
  - Seizure [Recovered/Resolved]
  - Drug dependence [Not Recovered/Not Resolved]

NARRATIVE: CASE EVENT DATE: 20240101
